FAERS Safety Report 7435155-8 (Version None)
Quarter: 2011Q2

REPORT INFORMATION
  Report Type: 
  Country: None (occurrence: None)
  Receive Date: 20110425
  Receipt Date: 20110421
  Transmission Date: 20111010
  Serious: Yes (Life-Threatening)
  Sender: FDA-Public Use
  Company Number: US-ASTRAZENECA-2011SE22762

PATIENT
  Age: 22 Year
  Sex: Male

DRUGS (2)
  1. QUETIAPINE [Suspect]
     Dosage: 70 TABLETS OF 300 MG
     Route: 048
  2. ALCOHOL [Concomitant]

REACTIONS (2)
  - OVERDOSE [None]
  - DELIRIUM TREMENS [None]
